FAERS Safety Report 6279644-0 (Version None)
Quarter: 2009Q3

REPORT INFORMATION
  Report Type: 
  Country: None (occurrence: None)
  Receive Date: 20090723
  Receipt Date: 20090715
  Transmission Date: 20100115
  Serious: Yes (Other)
  Sender: FDA-Public Use
  Company Number: US-ELI_LILLY_AND_COMPANY-US200907003307

PATIENT
  Sex: Female

DRUGS (11)
  1. HUMULIN 70/30 [Suspect]
     Dosage: UNK, UNK
     Dates: start: 20050101, end: 20090701
  2. HUMULIN 70/30 [Suspect]
     Dosage: UNK, UNKNOWN
  3. HUMULIN N [Suspect]
     Dosage: UNK, AS NEEDED
  4. HUMALOG [Suspect]
     Dosage: UNK, AS NEEDED
     Dates: start: 20090701
  5. NOVOLIN N [Concomitant]
     Dosage: UNK, AS NEEDED
  6. QUINAPRIL [Concomitant]
     Dosage: 40 MG, 2/D
  7. FLUOXETINE HYDROCHLORIDE [Concomitant]
     Dosage: 20 MG, DAILY (1/D)
  8. NEXIUM [Concomitant]
     Dosage: 40 MG, UNK
  9. FUROSEMIDE [Concomitant]
     Dosage: 80 MG, DAILY (1/D)
  10. ASPIRIN [Concomitant]
     Dosage: 81 MG, DAILY (1/D)
  11. ZOCOR [Concomitant]
     Dosage: UNK, EACH EVENING

REACTIONS (9)
  - BLOOD GLUCOSE DECREASED [None]
  - BLOOD GLUCOSE INCREASED [None]
  - CATARACT [None]
  - EYE HAEMORRHAGE [None]
  - FALL [None]
  - FEELING ABNORMAL [None]
  - FEMUR FRACTURE [None]
  - HYPOGLYCAEMIC UNCONSCIOUSNESS [None]
  - THERAPEUTIC RESPONSE UNEXPECTED [None]
